FAERS Safety Report 4777692-0 (Version None)
Quarter: 2005Q3

REPORT INFORMATION
  Report Type: 
  Country: None (occurrence: None)
  Receive Date: 20050923
  Receipt Date: 20050718
  Transmission Date: 20060218
  Serious: Yes (Hospitalization, Disabling)
  Sender: FDA-Public Use
  Company Number: US-MERCK-0507USA03056

PATIENT
  Age: 55 Year
  Sex: Male
  Weight: 64 kg

DRUGS (4)
  1. VIOXX [Suspect]
     Indication: ARTHRALGIA
     Route: 048
  2. VIOXX [Suspect]
     Route: 048
  3. TYLENOL (CAPLET) [Concomitant]
     Route: 065
  4. HUMULIN 70/30 [Concomitant]
     Route: 065

REACTIONS (3)
  - ARTHRALGIA [None]
  - CEREBROVASCULAR ACCIDENT [None]
  - OVERDOSE [None]
